FAERS Safety Report 7162786-5 (Version None)
Quarter: 2010Q4

REPORT INFORMATION
  Report Type: 
  Country: None (occurrence: None)
  Receive Date: 20101210
  Receipt Date: 20101210
  Transmission Date: 20110411
  Serious: Yes (Hospitalization, Disabling, Other)
  Sender: FDA-Public Use
  Company Number: None

PATIENT
  Sex: Male
  Weight: 75 kg

DRUGS (1)
  1. ELIDEL [Suspect]
     Indication: DERMATITIS
     Dosage: 2% 1 TO 2 DAILY

REACTIONS (1)
  - COLON CANCER [None]
